FAERS Safety Report 21848947 (Version 1)
Quarter: 2023Q1

REPORT INFORMATION
  Report Type: Spontaneous
  Country: NZ (occurrence: NZ)
  Receive Date: 20230111
  Receipt Date: 20230111
  Transmission Date: 20230417
  Serious: Yes (Hospitalization, Other)
  Sender: FDA-Public Use
  Company Number: NZ-GSKCCFAPAC-Case-01641953_AE-65928

PATIENT

DRUGS (1)
  1. ZEJULA [Suspect]
     Active Substance: NIRAPARIB
     Indication: Product used for unknown indication
     Dosage: 300 MG, QD
     Dates: start: 20221031, end: 20221221

REACTIONS (5)
  - Pneumonitis [Unknown]
  - Nausea [Unknown]
  - Vomiting [Unknown]
  - Hypoxia [Unknown]
  - Computerised tomogram thorax abnormal [Unknown]
